FAERS Safety Report 6266052-1 (Version None)
Quarter: 2009Q3

REPORT INFORMATION
  Report Type: 
  Country: None (occurrence: None)
  Receive Date: 20090709
  Receipt Date: 20090709
  Transmission Date: 20100115
  Serious: Yes (Other)
  Sender: FDA-Public Use
  Company Number: None

PATIENT
  Age: 42 Year
  Sex: Male

DRUGS (3)
  1. TREN-EXTREME 19-NORANDROSTA 4, 9 DIENE 3, 17 DI [Suspect]
     Dates: start: 20081201, end: 20090101
  2. FENOFENADINE [Concomitant]
  3. CHOLESTYRAMINE [Concomitant]

REACTIONS (5)
  - CHOLESTASIS [None]
  - FATIGUE [None]
  - JAUNDICE [None]
  - PRURITUS [None]
  - WEIGHT DECREASED [None]
